FAERS Safety Report 8132188-3 (Version None)
Quarter: 2012Q1

REPORT INFORMATION
  Report Type: 
  Country: None (occurrence: None)
  Receive Date: 20120208
  Receipt Date: 20120123
  Transmission Date: 20120608
  Serious: Yes (Other)
  Sender: FDA-Public Use
  Company Number: 918879

PATIENT
  Age: 19 Year
  Sex: Female
  Weight: 81.6475 kg

DRUGS (1)
  1. MONISTAT 7 [Suspect]
     Indication: FUNGAL INFECTION
     Dosage: INSERTED VAGINALLY
     Route: 067
     Dates: start: 20111224, end: 20111224

REACTIONS (2)
  - DRUG HYPERSENSITIVITY [None]
  - SCAR [None]
